FAERS Safety Report 9276978 (Version 1)
Quarter: 2013Q2

REPORT INFORMATION
  Report Type: Spontaneous
  Country: AU (occurrence: AU)
  Receive Date: 20130507
  Receipt Date: 20130507
  Transmission Date: 20140414
  Serious: Yes (Death)
  Sender: FDA-Public Use
  Company Number: AU-PFIZER INC-2013137257

PATIENT
  Sex: Male

DRUGS (2)
  1. ERAXIS [Suspect]
     Indication: ENDOCARDITIS
     Dosage: UNK
  2. FLUCONAZOLE [Concomitant]
     Indication: ENDOCARDITIS

REACTIONS (1)
  - Death [Fatal]
